FAERS Safety Report 9219508 (Version 1)
Quarter: 2013Q2

REPORT INFORMATION
  Report Type: Spontaneous
  Country: US (occurrence: None)
  Receive Date: 20130408
  Receipt Date: 20130408
  Transmission Date: 20140414
  Serious: No
  Sender: FDA-Public Use
  Company Number: None

PATIENT
  Sex: 0

DRUGS (1)
  1. ALBUMIN (HUMAN) [Suspect]
     Dosage: C240A6671  10/01/2015

REACTIONS (1)
  - Product quality issue [None]
